FAERS Safety Report 10208815 (Version 2)
Quarter: 2014Q2

REPORT INFORMATION
  Report Type: Spontaneous
  Country: GB (occurrence: GB)
  Receive Date: 20140530
  Receipt Date: 20140530
  Transmission Date: 20141212
  Serious: Yes (Death)
  Sender: FDA-Public Use
  Company Number: GB-MERCK-1404GBR011681

PATIENT
  Age: 55 Year
  Sex: Male
  Weight: 38 kg

DRUGS (5)
  1. CASPOFUNGIN ACETATE [Suspect]
     Indication: ASPERGILLUS INFECTION
     Route: 042
  2. PREDNISOLONE [Concomitant]
     Indication: TEMPORAL ARTERITIS
     Dosage: 60 MG, QD
     Route: 048
  3. DEXAMETHASONE [Concomitant]
     Indication: TEMPORAL ARTERITIS
     Route: 042
  4. MEROPENEM [Concomitant]
  5. LIP-AMPHOTERICIN [Concomitant]

REACTIONS (2)
  - General symptom [Fatal]
  - Drug ineffective [Unknown]
